FAERS Safety Report 24755271 (Version 2)
Quarter: 2024Q4

REPORT INFORMATION
  Report Type: Spontaneous
  Country: US (occurrence: US)
  Receive Date: 20241219
  Receipt Date: 20241219
  Transmission Date: 20250115
  Serious: No
  Sender: SANDOZ
  Company Number: US-SANDOZ-SDZ2024US071954

PATIENT
  Sex: Female

DRUGS (1)
  1. ESTRADIOL [Suspect]
     Active Substance: ESTRADIOL
     Indication: Product used for unknown indication
     Dosage: 0.025 MG,24H 8TTS 2XWEEKLY
     Route: 062

REACTIONS (3)
  - Poor quality product administered [Unknown]
  - Product adhesion issue [Unknown]
  - Product quality issue [Unknown]
